FAERS Safety Report 5649372-0 (Version None)
Quarter: 2008Q1

REPORT INFORMATION
  Report Type: 
  Country: None (occurrence: None)
  Receive Date: 20080304
  Receipt Date: 20080118
  Transmission Date: 20080703
  Serious: No
  Sender: FDA-Public Use
  Company Number: US-BAYER-200811570NA

PATIENT
  Age: 50 Year
  Sex: Female
  Weight: 73 kg

DRUGS (2)
  1. ULTRAVIST 300 [Suspect]
     Indication: COMPUTERISED TOMOGRAM
     Dosage: TOTAL DAILY DOSE: 95 ML  UNIT DOSE: 95 ML
     Route: 042
     Dates: start: 20080116, end: 20080116
  2. PREDNISONE TAB [Concomitant]
     Dates: start: 20080116, end: 20080116

REACTIONS (4)
  - COUGH [None]
  - FLUSHING [None]
  - HYPOAESTHESIA [None]
  - THROAT TIGHTNESS [None]
